FAERS Safety Report 5199227-3 (Version None)
Quarter: 2007Q1

REPORT INFORMATION
  Report Type: 
  Country: None (occurrence: None)
  Receive Date: 20070104
  Receipt Date: 20061226
  Transmission Date: 20070707
  Serious: Yes (Death, Other)
  Sender: FDA-Public Use
  Company Number: BR-PFIZER INC-2006155274

PATIENT
  Sex: Male

DRUGS (3)
  1. SUTENT [Suspect]
     Indication: GASTROINTESTINAL STROMAL TUMOUR
     Route: 048
     Dates: start: 20061001, end: 20061008
  2. GLEEVEC [Concomitant]
     Route: 048
     Dates: start: 20040101, end: 20060901
  3. PLAVIX [Concomitant]
     Route: 048
     Dates: start: 20060601, end: 20060801

REACTIONS (9)
  - CARDIO-RESPIRATORY ARREST [None]
  - CONDITION AGGRAVATED [None]
  - CONVULSION [None]
  - DISEASE PROGRESSION [None]
  - DIZZINESS [None]
  - FEELING ABNORMAL [None]
  - GASTROINTESTINAL STROMAL TUMOUR [None]
  - HEPATIC FAILURE [None]
  - RENAL FAILURE [None]
